FAERS Safety Report 9356778 (Version 1)
Quarter: 2013Q2

REPORT INFORMATION
  Report Type: Spontaneous
  Country: ES (occurrence: ES)
  Receive Date: 20130619
  Receipt Date: 20130619
  Transmission Date: 20140414
  Serious: Yes (Death, Hospitalization)
  Sender: FDA-Public Use
  Company Number: ES-UCBSA-088415

PATIENT
  Age: 82 Year
  Sex: Male

DRUGS (5)
  1. KEPPRA [Suspect]
     Indication: EPILEPSY
     Dosage: 500 MG
     Route: 048
     Dates: start: 20121218, end: 20121220
  2. ACENOCUMAROL [Interacting]
     Indication: ATRIAL FIBRILLATION
     Route: 048
     Dates: start: 20121110, end: 20121219
  3. CARVEDILOL [Concomitant]
     Indication: HYPERTENSION
     Route: 048
  4. FUROSEMIDE [Concomitant]
     Indication: HYPERTENSION
     Route: 042
     Dates: start: 20121016
  5. ESCITALOPRAM [Concomitant]
     Route: 048
     Dates: start: 20121211

REACTIONS (4)
  - Respiratory failure [Fatal]
  - International normalised ratio increased [Not Recovered/Not Resolved]
  - Nervous system disorder [Not Recovered/Not Resolved]
  - Drug interaction [Unknown]
